FAERS Safety Report 7396131-7 (Version None)
Quarter: 2011Q2

REPORT INFORMATION
  Report Type: 
  Country: None (occurrence: None)
  Receive Date: 20110406
  Receipt Date: 20110331
  Transmission Date: 20111010
  Serious: Yes (Death, Hospitalization)
  Sender: FDA-Public Use
  Company Number: NL-GENZYME-FLUD-1000546

PATIENT
  Age: 56 Year
  Sex: Male

DRUGS (22)
  1. CAMPATH [Suspect]
     Indication: CHRONIC LYMPHOCYTIC LEUKAEMIA
     Dosage: 30 MG/DAY, QD, DAY -1, 0, 1 OF CYCLE 1 EVERY 4 WEEKS
     Route: 065
     Dates: start: 20091001
  2. FLUDARA [Suspect]
     Dosage: 120 MG/M2 PER CYCLE, Q4W
     Route: 048
  3. FLUDARA [Suspect]
     Dosage: 120 MG/M2 PER CYCLE, Q4W
     Route: 048
  4. CAMPATH [Suspect]
     Dosage: 30 MG/DAY, QD, DAY 1 OF CYCLE 2 EVERY 4 WEEKS
     Route: 065
  5. INSULIN [Concomitant]
     Indication: PRODUCT USED FOR UNKNOWN INDICATION
     Dosage: UNK
     Route: 065
  6. FLUDARA [Suspect]
     Dosage: 120 MG/M2 PER CYCLE, Q4W
     Route: 048
     Dates: end: 20091221
  7. CAMPATH [Suspect]
     Dosage: 30 MG/DAY, QD, DAY 1 OF CYCLE 6 EVERY 4 WEEKS
     Route: 065
     Dates: end: 20091221
  8. CAMPATH [Suspect]
     Dosage: 30 MG/DAY, QD, DAY 1 OF CYCLE 5 EVERY 4 WEEKS
     Route: 065
  9. VALACICLOVIR [Concomitant]
     Indication: PROPHYLAXIS
     Dosage: UNK
     Route: 065
  10. FLUDARA [Suspect]
     Indication: CHRONIC LYMPHOCYTIC LEUKAEMIA
     Dosage: 120 MG/M2 PER CYCLE, Q4W
     Route: 048
     Dates: start: 20091001
  11. CYCLOPHOSPHAMIDE [Suspect]
     Indication: CHRONIC LYMPHOCYTIC LEUKAEMIA
     Dosage: 750 MG/M2, Q4W, PER CYCLE
     Route: 048
     Dates: start: 20091001
  12. CYCLOPHOSPHAMIDE [Suspect]
     Dosage: 750 MG/M2, Q4W, PER CYCLE
     Route: 048
  13. CYCLOPHOSPHAMIDE [Suspect]
     Dosage: 750 MG/M2, Q4W, PER CYCLE
     Route: 048
     Dates: end: 20091220
  14. FLUDARA [Suspect]
     Dosage: 120 MG/M2 PER CYCLE, Q4W
     Route: 048
  15. CAMPATH [Suspect]
     Dosage: 30 MG/DAY, QD, DAY 1 OF CYCLE 4 EVERY 4 WEEKS
     Route: 065
  16. CYCLOPHOSPHAMIDE [Suspect]
     Dosage: 750 MG/M2, Q4W, PER CYCLE
     Route: 048
  17. CYCLOPHOSPHAMIDE [Suspect]
     Dosage: 750 MG/M2, Q4W, PER CYCLE
     Route: 048
  18. TRIMETHOPRIM + SULFAMETHOXAZOLE [Concomitant]
     Indication: ANTIFUNGAL PROPHYLAXIS
     Dosage: UNK
     Route: 065
  19. ACETYLSALICYLIC ACID SRT [Concomitant]
     Indication: PRODUCT USED FOR UNKNOWN INDICATION
     Dosage: UNK
     Route: 065
  20. FLUDARA [Suspect]
     Dosage: 120 MG/M2 PER CYCLE, Q4W
     Route: 048
  21. CAMPATH [Suspect]
     Dosage: 30 MG/DAY, QD, DAY 1 OF CYCLE 3 EVERY 4 WEEKS
     Route: 065
  22. CYCLOPHOSPHAMIDE [Suspect]
     Dosage: 750 MG/M2, Q4W, PER CYCLE
     Route: 048

REACTIONS (1)
  - CENTRAL NERVOUS SYSTEM LYMPHOMA [None]
